FAERS Safety Report 16305506 (Version 2)
Quarter: 2021Q1

REPORT INFORMATION
  Report Type: Spontaneous
  Country: US (occurrence: US)
  Receive Date: 20190513
  Receipt Date: 20210218
  Transmission Date: 20210419
  Serious: Yes (Disabling, Other)
  Sender: FDA-Public Use
  Company Number: US-ASTRAZENECA-2019SE64006

PATIENT
  Age: 13655 Day
  Sex: Female
  Weight: 97.5 kg

DRUGS (39)
  1. NEXIUM 24HR [Suspect]
     Active Substance: ESOMEPRAZOLE MAGNESIUM
     Indication: GASTROOESOPHAGEAL REFLUX DISEASE
     Dosage: AS RECOMMENDED
     Route: 048
     Dates: start: 2014, end: 2018
  2. POTASSIUM CHLORIDE. [Concomitant]
     Active Substance: POTASSIUM CHLORIDE
  3. DILACOR [Concomitant]
  4. ZOLOFT [Concomitant]
     Active Substance: SERTRALINE HYDROCHLORIDE
  5. PRILOSEC OTC [Suspect]
     Active Substance: OMEPRAZOLE MAGNESIUM
     Indication: GASTROOESOPHAGEAL REFLUX DISEASE
     Dosage: AS RECOMMENDED
     Route: 048
     Dates: start: 2003, end: 2018
  6. RABEPRAZOLE [Suspect]
     Active Substance: RABEPRAZOLE
     Indication: GASTROOESOPHAGEAL REFLUX DISEASE
     Route: 065
     Dates: start: 2002, end: 2003
  7. HYDRALAZINE [Concomitant]
     Active Substance: HYDRALAZINE HYDROCHLORIDE
     Indication: HYPERTENSION
     Dates: start: 201704, end: 201904
  8. MOTRIN [Concomitant]
     Active Substance: IBUPROFEN
     Indication: MIGRAINE
  9. DOXYCYCLINE. [Concomitant]
     Active Substance: DOXYCYCLINE
  10. GLUCOSE [Concomitant]
     Active Substance: DEXTROSE
  11. TELMISARTAN. [Concomitant]
     Active Substance: TELMISARTAN
  12. FLONASE [Concomitant]
     Active Substance: FLUTICASONE PROPIONATE
  13. PREVACID [Suspect]
     Active Substance: LANSOPRAZOLE
     Indication: GASTROOESOPHAGEAL REFLUX DISEASE
     Dosage: 1?2 TIME DAILY
     Route: 065
     Dates: start: 1998, end: 2012
  14. CIPROFLOXACIN. [Concomitant]
     Active Substance: CIPROFLOXACIN
     Indication: INFECTION
     Dates: start: 201705, end: 201705
  15. TYLENOL [Concomitant]
     Active Substance: ACETAMINOPHEN
     Indication: PAIN
  16. NIFEDIPINE. [Concomitant]
     Active Substance: NIFEDIPINE
  17. PROTONIX [Suspect]
     Active Substance: PANTOPRAZOLE SODIUM
     Indication: GASTROOESOPHAGEAL REFLUX DISEASE
     Route: 065
     Dates: start: 1998, end: 2012
  18. AMOXICILLIN. [Concomitant]
     Active Substance: AMOXICILLIN
     Indication: INFECTION
     Dates: start: 201701, end: 201701
  19. ZANTAC [Concomitant]
     Active Substance: RANITIDINE HYDROCHLORIDE
     Dates: start: 2000, end: 2015
  20. CLONIDINE. [Concomitant]
     Active Substance: CLONIDINE
  21. LOPRESSOR [Concomitant]
     Active Substance: METOPROLOL TARTRATE
  22. NITROFURANTOIN. [Concomitant]
     Active Substance: NITROFURANTOIN
  23. PROTONIX [Suspect]
     Active Substance: PANTOPRAZOLE SODIUM
     Indication: GASTROOESOPHAGEAL REFLUX DISEASE
     Dosage: GENERIC
     Route: 065
     Dates: start: 2012, end: 2016
  24. DOXYCYCLINE. [Concomitant]
     Active Substance: DOXYCYCLINE
     Indication: INFECTION
     Dates: start: 201905, end: 201906
  25. CYCLOBENZAPRINE. [Concomitant]
     Active Substance: CYCLOBENZAPRINE
  26. METRONIDAZOLE. [Concomitant]
     Active Substance: METRONIDAZOLE
  27. TOBRADEX [Concomitant]
     Active Substance: DEXAMETHASONE\TOBRAMYCIN
  28. LORAZEPAM. [Concomitant]
     Active Substance: LORAZEPAM
  29. NEXIUM [Suspect]
     Active Substance: ESOMEPRAZOLE MAGNESIUM
     Indication: GASTROOESOPHAGEAL REFLUX DISEASE
     Dosage: 1?2 TIMES DAILY
     Route: 048
     Dates: start: 2001, end: 2012
  30. SPIRONOLACTONE. [Concomitant]
     Active Substance: SPIRONOLACTONE
     Indication: HYPERTENSION
     Dates: start: 201707, end: 201803
  31. TYLENOL [Concomitant]
     Active Substance: ACETAMINOPHEN
     Indication: INSOMNIA
  32. CEFTRIAXONE. [Concomitant]
     Active Substance: CEFTRIAXONE
  33. HYDRODIURIL [Concomitant]
     Active Substance: HYDROCHLOROTHIAZIDE
  34. HYGROTON [Concomitant]
     Active Substance: CHLORTHALIDONE
  35. LOTENSIN [Concomitant]
     Active Substance: BENAZEPRIL HYDROCHLORIDE
  36. PRILOSEC [Suspect]
     Active Substance: OMEPRAZOLE MAGNESIUM
     Indication: GASTROOESOPHAGEAL REFLUX DISEASE
     Route: 048
     Dates: start: 1998, end: 2012
  37. TMP/SMP [Concomitant]
     Indication: INFECTION
     Dates: start: 201612, end: 201701
  38. ALKA?SELTZER [Concomitant]
     Active Substance: ANHYDROUS CITRIC ACID\ASPIRIN\SODIUM BICARBONATE
     Dates: start: 2000
  39. VICODIN [Concomitant]
     Active Substance: ACETAMINOPHEN\HYDROCODONE BITARTRATE

REACTIONS (4)
  - Chronic kidney disease [Not Recovered/Not Resolved]
  - End stage renal disease [Unknown]
  - Renal failure [Unknown]
  - Nephrogenic anaemia [Unknown]

NARRATIVE: CASE EVENT DATE: 20140324
